FAERS Safety Report 8988721 (Version 1)
Quarter: 2012Q4

REPORT INFORMATION
  Report Type: Spontaneous
  Country: US (occurrence: None)
  Receive Date: 20121218
  Receipt Date: 20121218
  Transmission Date: 20130627
  Serious: Yes (Death, Hospitalization)
  Sender: FDA-Public Use
  Company Number: UTC-025654

PATIENT
  Age: 62 Year
  Sex: Female
  Weight: 58.64 kg

DRUGS (2)
  1. REMODULIN (2.5 MILLIGRAM/MILLILITERS, INJECTION FOR INFUSION) (TREPROSTINIL SODIUM) [Suspect]
     Indication: PRIMARY PULMONARY HYPERTENSION
     Dosage: 17.28 ug/kg (0.012 ug/kg, 1 in 1 min), Subcutaneous
     Dates: start: 20120921
  2. REMODULIN (2.5 MILLIGRAM/MILLILITERS, INJECTION FOR INFUSION) (TREPROSTINIL SODIUM) [Suspect]
     Indication: PRIMARY PULMONARY HYPERTENSION
     Dosage: 23.04 ug/kg (0.016 ug/kg, 1 in 1 min), Subcutaneous
     Dates: start: 201209, end: 20121113

REACTIONS (4)
  - Cardiac failure [None]
  - Pulmonary veno-occlusive disease [None]
  - Pleural effusion [None]
  - Hypoxia [None]
